FAERS Safety Report 18642893 (Version 1)
Quarter: 2020Q4

REPORT INFORMATION
  Report Type: Spontaneous
  Country: US (occurrence: US)
  Receive Date: 20201220
  Receipt Date: 20201220
  Transmission Date: 20210114
  Serious: Yes (Hospitalization, Disabling)
  Sender: FDA-Public Use
  Company Number: None

PATIENT
  Age: 31 Year
  Sex: Female

DRUGS (2)
  1. BOTULINUM TOXIN TYPE A [Suspect]
     Active Substance: BOTULINUM TOXIN TYPE A
     Indication: SKIN COSMETIC PROCEDURE
     Dosage: ?          QUANTITY:2 INJECTION(S);?
     Route: 058
     Dates: start: 20201210, end: 20201210
  2. PREDNISOLONE ACETATE. [Suspect]
     Active Substance: PREDNISOLONE ACETATE

REACTIONS (8)
  - Headache [None]
  - Photophobia [None]
  - Eye inflammation [None]
  - Vision blurred [None]
  - Pain [None]
  - Ocular hyperaemia [None]
  - Migraine [None]
  - Lacrimation increased [None]

NARRATIVE: CASE EVENT DATE: 20201211
